FAERS Safety Report 19766661 (Version 2)
Quarter: 2022Q1

REPORT INFORMATION
  Report Type: Spontaneous
  Country: FR (occurrence: None)
  Receive Date: 20210830
  Receipt Date: 20220325
  Transmission Date: 20220423
  Serious: Yes (Other)
  Sender: FDA-Public Use
  Company Number: 2021A700149

PATIENT
  Age: 74 Year
  Sex: Female

DRUGS (1)
  1. GEFITINIB [Suspect]
     Active Substance: GEFITINIB
     Indication: Adenocarcinoma
     Dosage: UNK
     Route: 048
     Dates: start: 201711

REACTIONS (5)
  - Drug resistance [Unknown]
  - Squamous cell carcinoma [Unknown]
  - EGFR gene mutation [Unknown]
  - Malignant transformation [Unknown]
  - Malignant neoplasm progression [Unknown]

NARRATIVE: CASE EVENT DATE: 20180101
